FAERS Safety Report 5104134-8 (Version None)
Quarter: 2006Q3

REPORT INFORMATION
  Report Type: 
  Country: None (occurrence: None)
  Receive Date: 20060911
  Receipt Date: 20060828
  Transmission Date: 20061208
  Serious: Yes (Other)
  Sender: FDA-Public Use
  Company Number: 2004233891DK

PATIENT
  Age: 41 Year
  Sex: Female

DRUGS (2)
  1. CABERGOLINE [Suspect]
     Indication: PARKINSON'S DISEASE
     Dosage: 4 MG (DAILY), ORAL
     Route: 048
     Dates: start: 20011101, end: 20040826
  2. MADOPAR (BENSERAZIDE HYDROCHLORIDE, LEVODOPA) [Concomitant]

REACTIONS (7)
  - CARDIAC FAILURE [None]
  - DYSPNOEA [None]
  - MITRAL VALVE INCOMPETENCE [None]
  - MITRAL VALVE STENOSIS [None]
  - OBSTRUCTION [None]
  - OBSTRUCTIVE AIRWAYS DISORDER [None]
  - TOTAL LUNG CAPACITY DECREASED [None]
